FAERS Safety Report 17471390 (Version 6)
Quarter: 2020Q3

REPORT INFORMATION
  Report Type: Report from Study
  Country: US (occurrence: US)
  Receive Date: 20200228
  Receipt Date: 20200816
  Transmission Date: 20201102
  Serious: Yes (Other)
  Sender: FDA-Public Use
  Company Number: NVSC2020US056935

PATIENT
  Age: 70 Year
  Sex: Male

DRUGS (3)
  1. BEOVU [Suspect]
     Active Substance: BROLUCIZUMAB-DBLL
     Dosage: UNK, QMO
     Route: 031
     Dates: start: 20200128
  2. LUCENTIS [Suspect]
     Active Substance: RANIBIZUMAB
     Indication: PRODUCT USED FOR UNKNOWN INDICATION
     Dosage: 0.5 G, QMO (OD) (3 INJECTIONS)
     Route: 031
     Dates: start: 20190924, end: 20191119
  3. BEOVU [Suspect]
     Active Substance: BROLUCIZUMAB-DBLL
     Indication: NEOVASCULAR AGE-RELATED MACULAR DEGENERATION
     Dosage: UNK, QMO
     Route: 031
     Dates: start: 20191231

REACTIONS (7)
  - Eye pain [Recovered/Resolved]
  - Vitreous floaters [Recovered/Resolved]
  - Anterior chamber cell [Recovered/Resolved]
  - Visual acuity reduced [Unknown]
  - Vision blurred [Recovered/Resolved]
  - Iridocyclitis [Recovered/Resolved]
  - Anterior chamber inflammation [Recovered/Resolved]

NARRATIVE: CASE EVENT DATE: 20200130
